FAERS Safety Report 20030682 (Version 9)
Quarter: 2023Q2

REPORT INFORMATION
  Report Type: Spontaneous
  Country: US (occurrence: US)
  Receive Date: 20211103
  Receipt Date: 20230404
  Transmission Date: 20230722
  Serious: Yes (Hospitalization)
  Sender: FDA-Public Use
  Company Number: US-DSJP-DSU-2021-136377AA

PATIENT
  Age: 55 Year
  Sex: Male

DRUGS (3)
  1. TURALIO [Suspect]
     Active Substance: PEXIDARTINIB HYDROCHLORIDE
     Indication: Giant cell tumour of tendon sheath
     Dosage: 200 MG, QD
     Route: 048
     Dates: start: 20211002, end: 20230118
  2. TURALIO [Suspect]
     Active Substance: PEXIDARTINIB HYDROCHLORIDE
     Indication: Synovitis
     Dosage: 125 MG, QD
     Route: 048
     Dates: start: 20230223
  3. TURALIO [Suspect]
     Active Substance: PEXIDARTINIB HYDROCHLORIDE
     Dosage: 125 MG
     Route: 048
     Dates: start: 20211002

REACTIONS (9)
  - Hospitalisation [Not Recovered/Not Resolved]
  - Skin reaction [Recovered/Resolved]
  - Burning sensation [Recovered/Resolved]
  - Product use issue [Not Recovered/Not Resolved]
  - Pruritus [Recovered/Resolved]
  - COVID-19 [Not Recovered/Not Resolved]
  - Product dose omission issue [Not Recovered/Not Resolved]
  - Meniscus injury [Unknown]
  - Pruritus [Recovering/Resolving]

NARRATIVE: CASE EVENT DATE: 20211002
